FAERS Safety Report 11264191 (Version 2)
Quarter: 2015Q3

REPORT INFORMATION
  Report Type: Spontaneous
  Country: US (occurrence: US)
  Receive Date: 20150713
  Receipt Date: 20150812
  Transmission Date: 20151125
  Serious: No
  Sender: FDA-Public Use
  Company Number: US-JNJFOC-20150617117

PATIENT
  Age: 68 Year
  Sex: Male

DRUGS (1)
  1. STELARA [Suspect]
     Active Substance: USTEKINUMAB
     Indication: PSORIASIS
     Dosage: DOSAGE FREQUENCY: AS DIRECTED ONCE THEN REPEAT IN 4 WEEKS, THEN ONCE EVERY 3 MONTHS
     Route: 058
     Dates: start: 20150602

REACTIONS (2)
  - Liquid product physical issue [Unknown]
  - Drug dose omission [Unknown]

NARRATIVE: CASE EVENT DATE: 20150622
